FAERS Safety Report 22315351 (Version 3)
Quarter: 2023Q2

REPORT INFORMATION
  Report Type: Report from Study
  Country: FR (occurrence: FR)
  Receive Date: 20230512
  Receipt Date: 20230519
  Transmission Date: 20230722
  Serious: Yes (Hospitalization)
  Sender: FDA-Public Use
  Company Number: FR-002147023-NVSC2023FR105184

PATIENT
  Age: 85 Year
  Sex: Male
  Weight: 58 kg

DRUGS (4)
  1. PLUVICTO [Suspect]
     Active Substance: LUTETIUM LU-177 VIPIVOTIDE TETRAXETAN
     Indication: Prostate cancer
     Dosage: 7344 MBQ, ONCE (CYCLE 1)
     Route: 042
     Dates: start: 20221110, end: 20221110
  2. PLUVICTO [Suspect]
     Active Substance: LUTETIUM LU-177 VIPIVOTIDE TETRAXETAN
     Dosage: 7293 MBQ, ONCE (CYCLE 2)
     Route: 042
     Dates: start: 20221222, end: 20221222
  3. PLUVICTO [Suspect]
     Active Substance: LUTETIUM LU-177 VIPIVOTIDE TETRAXETAN
     Dosage: 7280 MBQ, ONCE (CYCLE 3)
     Route: 042
     Dates: start: 20230202, end: 20230202
  4. PLUVICTO [Suspect]
     Active Substance: LUTETIUM LU-177 VIPIVOTIDE TETRAXETAN
     Dosage: 5865.8 MBQ, ONCE (CYCLE 4)
     Route: 042
     Dates: start: 20230316, end: 20230316

REACTIONS (5)
  - Femur fracture [Recovering/Resolving]
  - General physical health deterioration [Unknown]
  - Anaemia [Unknown]
  - Osteoporosis [Unknown]
  - Asthenia [Unknown]

NARRATIVE: CASE EVENT DATE: 20230427
